FAERS Safety Report 23935173 (Version 1)
Quarter: 2024Q2

REPORT INFORMATION
  Report Type: Spontaneous
  Country: PL (occurrence: PL)
  Receive Date: 20240604
  Receipt Date: 20240604
  Transmission Date: 20240716
  Serious: Yes (Other)
  Sender: FDA-Public Use
  Company Number: PL-URPL-1-2191-2020

PATIENT
  Age: 53 Year
  Sex: Female
  Weight: 60 kg

DRUGS (1)
  1. ZOLPIDEM [Suspect]
     Active Substance: ZOLPIDEM TARTRATE
     Indication: Product used for unknown indication
     Dosage: 30 DOSAGE FORM
     Route: 048
     Dates: start: 20200917, end: 20200917

REACTIONS (2)
  - Dementia [Recovering/Resolving]
  - Sluggishness [Recovering/Resolving]
